FAERS Safety Report 9772407 (Version 1)
Quarter: 2013Q4

REPORT INFORMATION
  Report Type: Spontaneous
  Country: US (occurrence: None)
  Receive Date: 20131218
  Receipt Date: 20131218
  Transmission Date: 20140711
  Serious: No
  Sender: FDA-Public Use
  Company Number: None

PATIENT
  Age: 62 Year
  Sex: Female

DRUGS (2)
  1. FORTEO [Suspect]
     Indication: CHONDROPATHY
     Dosage: 20 MCG SUBCUTANEOUSLY DAILY
     Route: 058
     Dates: start: 20120811, end: 20131203
  2. FORTEO [Suspect]
     Indication: BONE DISORDER
     Dosage: 20 MCG SUBCUTANEOUSLY DAILY
     Route: 058
     Dates: start: 20120811, end: 20131203

REACTIONS (2)
  - Urticaria [None]
  - Erythema [None]
